FAERS Safety Report 11075139 (Version 1)
Quarter: 2015Q2

REPORT INFORMATION
  Report Type: Report from Study
  Country: US (occurrence: US)
  Receive Date: 20150429
  Receipt Date: 20150429
  Transmission Date: 20150821
  Serious: Yes (Disabling)
  Sender: FDA-Public Use
  Company Number: US-SA-2014SA160766

PATIENT
  Age: 47 Year
  Sex: Female

DRUGS (1)
  1. AUBAGIO [Suspect]
     Active Substance: TERIFLUNOMIDE
     Indication: MULTIPLE SCLEROSIS
     Route: 048
     Dates: start: 20140805

REACTIONS (4)
  - Cyst [Unknown]
  - Bronchitis [Unknown]
  - Hip fracture [Unknown]
  - Ear infection [Unknown]

NARRATIVE: CASE EVENT DATE: 20141103
